FAERS Safety Report 24850829 (Version 1)
Quarter: 2025Q1

REPORT INFORMATION
  Report Type: Spontaneous
  Country: US (occurrence: US)
  Receive Date: 20250116
  Receipt Date: 20250116
  Transmission Date: 20250409
  Serious: Yes (Other)
  Sender: AMGEN
  Company Number: US-AMGEN-USASP2025007782

PATIENT
  Age: 59 Year
  Sex: Male

DRUGS (6)
  1. BEVACIZUMAB [Suspect]
     Active Substance: BEVACIZUMAB
     Indication: Acinar cell carcinoma of pancreas
     Route: 065
  2. GEMCITABINE [Concomitant]
     Active Substance: GEMCITABINE
  3. PACLITAXEL [Concomitant]
     Active Substance: PACLITAXEL
  4. FLUOROURACIL [Concomitant]
     Active Substance: FLUOROURACIL
  5. LEUCOVORIN [Concomitant]
     Active Substance: LEUCOVORIN\LEUCOVORIN CALCIUM
  6. OXALIPLATIN [Concomitant]
     Active Substance: OXALIPLATIN

REACTIONS (3)
  - Acinar cell carcinoma of pancreas [Unknown]
  - Drug effective for unapproved indication [Unknown]
  - Off label use [Unknown]
